FAERS Safety Report 8606980-2 (Version None)
Quarter: 2012Q3

REPORT INFORMATION
  Report Type: 
  Country: None (occurrence: None)
  Receive Date: 20120820
  Receipt Date: 20120813
  Transmission Date: 20120928
  Serious: Yes (Hospitalization)
  Sender: FDA-Public Use
  Company Number: DE-GILEAD-2012-0059491

PATIENT
  Sex: Female

DRUGS (2)
  1. LETAIRIS [Suspect]
     Dosage: 5 MG, QD
     Route: 048
     Dates: start: 20100521
  2. LETAIRIS [Suspect]
     Indication: PULMONARY ARTERIAL HYPERTENSION
     Dosage: 2.5 MG, QD
     Route: 048
     Dates: start: 20100421, end: 20100520

REACTIONS (3)
  - BACTERAEMIA [None]
  - BRONCHOPNEUMONIA [None]
  - PULMONARY FIBROSIS [None]
